FAERS Safety Report 11016771 (Version 2)
Quarter: 2015Q2

REPORT INFORMATION
  Report Type: Spontaneous
  Country: US (occurrence: US)
  Receive Date: 20150412
  Receipt Date: 20150525
  Transmission Date: 20150821
  Serious: No
  Sender: FDA-Public Use
  Company Number: US-JNJFOC-20121208053

PATIENT
  Sex: Female

DRUGS (2)
  1. NORGESTIMATE/ETHINYL ESTRADIOL [Suspect]
     Active Substance: ETHINYL ESTRADIOL\NORGESTIMATE
     Indication: CONTRACEPTION
     Dosage: 35 UG ETHINYLESTRADIOL + 0.25 MG NORGESTIMATE DAILY
     Route: 048
  2. NORELGESTROMIN/ETHINYL ESTRADIOL [Suspect]
     Active Substance: ETHINYL ESTRADIOL\NORELGESTROMIN
     Indication: CONTRACEPTION
     Dosage: ETHINYLESTADIOL 20 UG AND NORELGESTROMIN 150 UG DAILY, 3 WEEKS ON AND ONE WEEK OFF FOR EACH MONTH
     Route: 065

REACTIONS (2)
  - Insulin resistance [Unknown]
  - Blood triglycerides increased [Unknown]
